FAERS Safety Report 11924576 (Version 2)
Quarter: 2016Q1

REPORT INFORMATION
  Report Type: Spontaneous
  Country: FR (occurrence: FR)
  Receive Date: 20160118
  Receipt Date: 20160307
  Transmission Date: 20160526
  Serious: Yes (Death)
  Sender: FDA-Public Use
  Company Number: FR-JNJFOC-20160110115

PATIENT
  Age: 75 Year
  Sex: Male

DRUGS (13)
  1. OGASTORO [Concomitant]
     Active Substance: LANSOPRAZOLE
     Route: 065
     Dates: start: 20151117, end: 20151211
  2. ZIAGEN [Concomitant]
     Active Substance: ABACAVIR SULFATE
     Route: 065
  3. CALCIPARINE [Concomitant]
     Active Substance: HEPARIN CALCIUM
     Route: 065
     Dates: start: 20150821, end: 20151204
  4. PREZISTA [Suspect]
     Active Substance: DARUNAVIR ETHANOLATE
     Indication: PRODUCT USED FOR UNKNOWN INDICATION
     Route: 048
     Dates: start: 20151204
  5. EPIVIR [Concomitant]
     Active Substance: LAMIVUDINE
     Route: 065
  6. EUPANTOL [Suspect]
     Active Substance: PANTOPRAZOLE SODIUM
     Indication: PRODUCT USED FOR UNKNOWN INDICATION
     Route: 042
     Dates: start: 20151211
  7. TRIFLUCAN [Concomitant]
     Active Substance: FLUCONAZOLE
     Route: 042
     Dates: start: 20151124, end: 20151209
  8. MIANSERINE [Concomitant]
     Active Substance: MIANSERIN HYDROCHLORIDE
     Route: 065
     Dates: start: 20151212
  9. KIVEXA [Concomitant]
     Active Substance: ABACAVIR SULFATE\LAMIVUDINE
     Route: 065
     Dates: start: 20150909, end: 20151204
  10. AZITHROMYCINE ARROW [Suspect]
     Active Substance: AZITHROMYCIN DIHYDRATE
     Indication: PRODUCT USED FOR UNKNOWN INDICATION
     Route: 048
     Dates: start: 20151204
  11. CALCITONINE [Concomitant]
     Route: 065
     Dates: start: 20151210, end: 20151213
  12. ISENTRESS [Concomitant]
     Active Substance: RALTEGRAVIR POTASSIUM
     Route: 065
     Dates: start: 20150917, end: 20151204
  13. CLARITHROMYCINE [Concomitant]
     Active Substance: CLARITHROMYCIN
     Route: 065
     Dates: end: 20151204

REACTIONS (3)
  - Acute kidney injury [Fatal]
  - Blood creatinine increased [Fatal]
  - Blood urea increased [Fatal]

NARRATIVE: CASE EVENT DATE: 20151216
